FAERS Safety Report 14174172 (Version 1)
Quarter: 2017Q4

REPORT INFORMATION
  Report Type: Spontaneous
  Country: US (occurrence: None)
  Receive Date: 20171109
  Receipt Date: 20171109
  Transmission Date: 20180321
  Serious: Yes (Other)
  Sender: FDA-Public Use
  Company Number: None

PATIENT
  Age: 64 Year
  Sex: Male
  Weight: 72.58 kg

DRUGS (1)
  1. SODIUM BICARBONATE. [Suspect]
     Active Substance: SODIUM BICARBONATE
     Route: 042

REACTIONS (8)
  - Alopecia [None]
  - Restlessness [None]
  - Therapy non-responder [None]
  - Nasopharyngitis [None]
  - Depression [None]
  - Chills [None]
  - Sepsis [None]
  - Fungal infection [None]

NARRATIVE: CASE EVENT DATE: 20170412
